FAERS Safety Report 9767358 (Version 1)
Quarter: 2013Q4

REPORT INFORMATION
  Report Type: Spontaneous
  Country: US (occurrence: None)
  Receive Date: 20131216
  Receipt Date: 20131216
  Transmission Date: 20140711
  Serious: Yes (Hospitalization)
  Sender: FDA-Public Use
  Company Number: None

PATIENT
  Age: 73 Year
  Sex: Male
  Weight: 72.7 kg

DRUGS (16)
  1. FLUOROURACIL [Suspect]
     Indication: PANCREATIC CARCINOMA
     Route: 042
     Dates: start: 20130930, end: 20131111
  2. IRINOTECAN [Suspect]
     Indication: PANCREATIC CARCINOMA
     Route: 048
     Dates: start: 20130930
  3. OXALIPLATIN [Suspect]
  4. LEUCOVORIN [Suspect]
  5. MARINOL [Concomitant]
  6. ALBUTEROL [Concomitant]
  7. ASPIRIN [Concomitant]
  8. ATORVASTATIN [Concomitant]
  9. CALCIUM [Concomitant]
  10. NITROSTAT [Concomitant]
  11. CLOPIDOGREL [Concomitant]
  12. EXOXAPARIN [Concomitant]
  13. HYDROCODONE/ACETAMINOPHEN [Concomitant]
  14. LOSARTAN [Concomitant]
  15. SYMBICORT [Concomitant]
  16. TERAZOSIN [Concomitant]

REACTIONS (4)
  - Oedema peripheral [None]
  - Dysuria [None]
  - Convulsion [None]
  - Subdural haematoma [None]
